FAERS Safety Report 24252476 (Version 1)
Quarter: 2024Q3

REPORT INFORMATION
  Report Type: Report from Study
  Country: US (occurrence: US)
  Receive Date: 20240827
  Receipt Date: 20240827
  Transmission Date: 20241016
  Serious: Yes (Hospitalization, Other)
  Sender: ABBVIE
  Company Number: US-ABBVIE-5891745

PATIENT
  Sex: Female

DRUGS (1)
  1. SKYRIZI [Suspect]
     Active Substance: RISANKIZUMAB-RZAA
     Indication: Crohn^s disease
     Route: 042
     Dates: start: 20240531

REACTIONS (3)
  - Intestinal obstruction [Recovering/Resolving]
  - Crohn^s disease [Unknown]
  - Nausea [Unknown]

NARRATIVE: CASE EVENT DATE: 20240101
